FAERS Safety Report 11905651 (Version 2)
Quarter: 2016Q2

REPORT INFORMATION
  Report Type: Spontaneous
  Country: CZ (occurrence: CZ)
  Receive Date: 20160110
  Receipt Date: 20160522
  Transmission Date: 20160815
  Serious: Yes (Other)
  Sender: FDA-Public Use
  Company Number: CZ-TEVA-622832ISR

PATIENT
  Age: 44 Year
  Sex: Female

DRUGS (4)
  1. FOLINIC ACID [Suspect]
     Active Substance: LEUCOVORIN
     Indication: NEOPLASM MALIGNANT
     Dates: start: 201405, end: 201503
  2. FLUOROURACIL. [Suspect]
     Active Substance: FLUOROURACIL
     Indication: NEOPLASM MALIGNANT
     Dates: start: 201405, end: 201503
  3. PANITUMUMAB [Suspect]
     Active Substance: PANITUMUMAB
     Indication: NEOPLASM MALIGNANT
     Dates: start: 201405, end: 2015
  4. OXALIPLATIN. [Suspect]
     Active Substance: OXALIPLATIN
     Indication: NEOPLASM MALIGNANT
     Dosage: FROM THE 9TH CYCLE WAS DOSE GRADUALLY REDUCED, FROM THE 12TH CYCLE IT WAS WITHDRAWN
     Dates: start: 201405, end: 2014

REACTIONS (2)
  - Metastasis [Not Recovered/Not Resolved]
  - Peripheral sensory neuropathy [Recovered/Resolved]

NARRATIVE: CASE EVENT DATE: 2014
